FAERS Safety Report 18210507 (Version 1)
Quarter: 2020Q3

REPORT INFORMATION
  Report Type: Spontaneous
  Country: ES (occurrence: ES)
  Receive Date: 20200829
  Receipt Date: 20200829
  Transmission Date: 20201103
  Serious: Yes (Other)
  Sender: FDA-Public Use
  Company Number: NVSC2020ES237190

PATIENT
  Age: 76 Year
  Sex: Female

DRUGS (4)
  1. PREDNISONE. [Suspect]
     Active Substance: PREDNISONE
     Indication: POLYARTERITIS NODOSA
     Dosage: 10 MG, QD
     Route: 065
  2. PREDNISONE. [Suspect]
     Active Substance: PREDNISONE
     Dosage: 30 MG, Q24H
     Route: 065
  3. MYCOPHENOLIC ACID. [Suspect]
     Active Substance: MYCOPHENOLIC ACID
     Indication: POLYARTERITIS NODOSA
     Dosage: 1080 MG, Q24H
     Route: 065
  4. TOCILIZUMAB. [Concomitant]
     Active Substance: TOCILIZUMAB
     Indication: POLYARTERITIS NODOSA
     Dosage: 8 MG/KG, QMO (600 MG/MONTH)
     Route: 041

REACTIONS (5)
  - Product use in unapproved indication [Unknown]
  - Disease progression [Unknown]
  - Condition aggravated [Unknown]
  - Polyarteritis nodosa [Unknown]
  - Pain [Unknown]

NARRATIVE: CASE EVENT DATE: 201804
